FAERS Safety Report 9902906 (Version 1)
Quarter: 2014Q1

REPORT INFORMATION
  Report Type: Spontaneous
  Country: DE (occurrence: DE)
  Receive Date: 20140217
  Receipt Date: 20140217
  Transmission Date: 20141002
  Serious: Yes (Hospitalization, Other)
  Sender: FDA-Public Use
  Company Number: PHHY2011DE105557

PATIENT
  Age: 41 Year
  Sex: Male

DRUGS (10)
  1. CLOMIPRAMINE [Suspect]
     Dosage: UNK UKN, UNK
  2. NORTRIPTYLINE [Suspect]
     Dosage: UNK UKN, UNK
  3. LITHIUM [Suspect]
     Dosage: UNK UKN, UNK
  4. VENLAFAXINE [Suspect]
     Dosage: UNK UKN, UNK
  5. AMITRIPTYLINE [Suspect]
     Dosage: UNK UKN, UNK
  6. SERTRALINE [Suspect]
     Dosage: UNK UKN, UNK
  7. REBOXETINE [Suspect]
     Dosage: UNK UKN, UNK
  8. CITALOPRAM [Suspect]
  9. FLUVOXAMINE [Suspect]
     Dosage: UNK UKN, UNK
  10. MIRTAZAPINE [Suspect]
     Dosage: UNK UKN, UNK

REACTIONS (5)
  - Suicidal ideation [Unknown]
  - Dysthymic disorder [Unknown]
  - Major depression [Unknown]
  - Sexual dysfunction [Unknown]
  - Drug ineffective [Unknown]
